FAERS Safety Report 21945490 (Version 1)
Quarter: 2023Q1

REPORT INFORMATION
  Report Type: Report from Study
  Country: TR (occurrence: TR)
  Receive Date: 20230202
  Receipt Date: 20230202
  Transmission Date: 20230418
  Serious: Yes (Death, Hospitalization)
  Sender: FDA-Public Use
  Company Number: TR-ABBVIE-22K-161-4536760-00

PATIENT
  Sex: Male
  Weight: 90 kg

DRUGS (4)
  1. CARBIDOPA\LEVODOPA [Suspect]
     Active Substance: CARBIDOPA\LEVODOPA
     Indication: Parkinson^s disease
     Dosage: MORNING DOSE (ML): 8.20 CONTINIOUS DOSE (ML): 6.00 EXTRA DOSE (ML): 2.20
     Route: 050
     Dates: start: 20220826
  2. CARBIDOPA\LEVODOPA [Suspect]
     Active Substance: CARBIDOPA\LEVODOPA
     Dosage: MORNING DOSE (ML): 12.10 CONTINIOUS DOSE (ML): 6.00 EXTRA DOSE (ML): 2.50
     Route: 050
     Dates: end: 20220909
  3. CARBIDOPA\LEVODOPA [Suspect]
     Active Substance: CARBIDOPA\LEVODOPA
     Dosage: MORNING DOSE (ML): 11.80 CONTINIOUS DOSE (ML): 5.50 EXTRA DOSE (ML): 2.20
     Route: 050
     Dates: start: 20220909, end: 20221024
  4. CARBIDOPA\LEVODOPA [Suspect]
     Active Substance: CARBIDOPA\LEVODOPA
     Dosage: MORNING DOSE (ML): 11.00 CONTINIOUS DOSE (ML): 5.00 EXTRA DOSE (ML): 2.20
     Route: 050
     Dates: start: 20221024

REACTIONS (2)
  - Pneumonia [Fatal]
  - Dyskinesia [Not Recovered/Not Resolved]
